FAERS Safety Report 4276637-X (Version None)
Quarter: 2004Q1

REPORT INFORMATION
  Report Type: 
  Country: None (occurrence: None)
  Receive Date: 20040120
  Receipt Date: 20040108
  Transmission Date: 20041129
  Serious: Yes (Hospitalization, Other)
  Sender: FDA-Public Use
  Company Number: 2003-04382

PATIENT
  Age: 30 Year
  Sex: Female

DRUGS (5)
  1. FERRLECIT [Suspect]
     Indication: IRON DEFICIENCY
     Dosage: 62.5 MG, INTRAVENOUS
     Route: 042
  2. FOLIO [Concomitant]
  3. MAGNESIUM VERLA TABLET (MAGNESIUM HYDROGEN ASPARTATE) [Concomitant]
  4. VOMEX A ^ENDOPHARM^ (DIMENHYDRINATE) SUPPOSITORY [Concomitant]
  5. GAVISCON (SODIUM BICARBONATE, SODIUM ALGINATE) SUSPENSION (ORAL) [Concomitant]

REACTIONS (5)
  - DRUG EXPOSURE DURING PREGNANCY [None]
  - EXTRAVASATION [None]
  - INJECTION SITE HAEMORRHAGE [None]
  - INTENTIONAL MISUSE [None]
  - MEDICATION ERROR [None]
